FAERS Safety Report 8128145-3 (Version None)
Quarter: 2012Q1

REPORT INFORMATION
  Report Type: 
  Country: None (occurrence: None)
  Receive Date: 20120210
  Receipt Date: 20120208
  Transmission Date: 20120608
  Serious: Yes (Life-Threatening)
  Sender: FDA-Public Use
  Company Number: BR-PFIZER INC-2012035456

PATIENT
  Age: 74 Year
  Sex: Male
  Weight: 72 kg

DRUGS (3)
  1. LIPITOR [Suspect]
     Dosage: 20MG, UNK
  2. LIPITOR [Suspect]
     Indication: CORONARY ARTERY OCCLUSION
     Dosage: 10 MG, 1X/DAY
     Route: 048
     Dates: start: 20110708
  3. LIPITOR [Suspect]
     Dosage: 10MG, UNK

REACTIONS (1)
  - CEREBROVASCULAR ACCIDENT [None]
